FAERS Safety Report 8510886-7 (Version None)
Quarter: 2012Q3

REPORT INFORMATION
  Report Type: 
  Country: None (occurrence: None)
  Receive Date: 20120703
  Receipt Date: 20120619
  Transmission Date: 20120928
  Serious: Yes (Life-Threatening, Other)
  Sender: FDA-Public Use
  Company Number: 2012-00935

PATIENT
  Age: 23 Year
  Sex: Female

DRUGS (1)
  1. CEFOTAXIME SODIUM [Suspect]
     Indication: PYREXIA

REACTIONS (5)
  - PREMATURE RUPTURE OF MEMBRANES [None]
  - HAEMOGLOBIN DECREASED [None]
  - DEHYDRATION [None]
  - STEVENS-JOHNSON SYNDROME [None]
  - MATERNAL EXPOSURE DURING PREGNANCY [None]
